FAERS Safety Report 7367296-8 (Version None)
Quarter: 2011Q1

REPORT INFORMATION
  Report Type: 
  Country: None (occurrence: None)
  Receive Date: 20110322
  Receipt Date: 20110311
  Transmission Date: 20110831
  Serious: Yes (Hospitalization, Disabling, Other)
  Sender: FDA-Public Use
  Company Number: US-MERCK-0603USA00628

PATIENT
  Age: 47 Year
  Sex: Female
  Weight: 54 kg

DRUGS (10)
  1. PRINIVIL [Concomitant]
     Indication: HYPERTENSION
     Route: 048
     Dates: start: 20000120
  2. FOSAMAX [Suspect]
     Indication: OSTEOPOROSIS
     Route: 048
     Dates: start: 19950101, end: 20050620
  3. ALENDRONATE SODIUM [Suspect]
     Route: 048
     Dates: start: 20090811, end: 20100116
  4. FOSAMAX PLUS D [Suspect]
     Indication: OSTEOPOROSIS
     Route: 048
     Dates: start: 20061228, end: 20110108
  5. CALCIUM (UNSPECIFIED) [Concomitant]
     Route: 065
  6. ALENDRONATE SODIUM [Suspect]
     Route: 048
     Dates: start: 20100310
  7. ALLOPURINOL [Concomitant]
     Route: 065
     Dates: start: 19870101
  8. FOSAMAX [Suspect]
     Route: 048
     Dates: start: 20010418, end: 20061227
  9. VITAMIN D (UNSPECIFIED) [Concomitant]
     Route: 065
  10. ASPIRIN [Concomitant]
     Indication: ARTHRALGIA
     Route: 048

REACTIONS (36)
  - NASOPHARYNGITIS [None]
  - FRACTURED SACRUM [None]
  - SMALL INTESTINAL OBSTRUCTION [None]
  - RENAL FAILURE ACUTE [None]
  - BLOOD IRON DECREASED [None]
  - TOOTH DISORDER [None]
  - OSTEONECROSIS OF JAW [None]
  - URINARY TRACT INFECTION [None]
  - TRAUMATIC HAEMATOMA [None]
  - ROAD TRAFFIC ACCIDENT [None]
  - GASTRIC POLYPS [None]
  - OSTEOPENIA [None]
  - ANXIETY [None]
  - VOLVULUS [None]
  - ABDOMINAL PAIN [None]
  - HERPES ZOSTER [None]
  - ORAL INFECTION [None]
  - NEPHROPATHY [None]
  - DIARRHOEA [None]
  - INCISIONAL HERNIA [None]
  - TINNITUS [None]
  - SPINAL OSTEOARTHRITIS [None]
  - HEAD INJURY [None]
  - FALL [None]
  - INTERVERTEBRAL DISC DEGENERATION [None]
  - BREAST TENDERNESS [None]
  - TOOTH ABSCESS [None]
  - ROSACEA [None]
  - POST PROCEDURAL INFECTION [None]
  - ORAL DISORDER [None]
  - WHIPLASH INJURY [None]
  - AZOTAEMIA [None]
  - APPENDIX DISORDER [None]
  - DENTAL PROSTHESIS USER [None]
  - NEPHROLITHIASIS [None]
  - RENAL OSTEODYSTROPHY [None]
